FAERS Safety Report 12556449 (Version 1)
Quarter: 2016Q3

REPORT INFORMATION
  Report Type: Spontaneous
  Country: US (occurrence: US)
  Receive Date: 20160714
  Receipt Date: 20160714
  Transmission Date: 20161109
  Serious: Yes (Other)
  Sender: FDA-Public Use
  Company Number: US-SA-2015SA183344

PATIENT
  Age: 42 Year
  Sex: Male

DRUGS (7)
  1. BACLOFEN. [Concomitant]
     Active Substance: BACLOFEN
  2. AUBAGIO [Suspect]
     Active Substance: TERIFLUNOMIDE
     Indication: MULTIPLE SCLEROSIS
     Route: 048
     Dates: start: 20150604
  3. LISINOPRIL. [Concomitant]
     Active Substance: LISINOPRIL
  4. DESMOPRESSIN [Concomitant]
     Active Substance: DESMOPRESSIN
  5. PROTONIX [Concomitant]
     Active Substance: PANTOPRAZOLE SODIUM
  6. ZOLOFT [Concomitant]
     Active Substance: SERTRALINE HYDROCHLORIDE
  7. LIPITOR [Concomitant]
     Active Substance: ATORVASTATIN CALCIUM

REACTIONS (4)
  - Cellulitis [Unknown]
  - Erythema [Unknown]
  - Pain in extremity [Unknown]
  - Peripheral swelling [Unknown]
